FAERS Safety Report 16305181 (Version 1)
Quarter: 2019Q2

REPORT INFORMATION
  Report Type: Spontaneous
  Country: TR (occurrence: TR)
  Receive Date: 20190513
  Receipt Date: 20190513
  Transmission Date: 20190711
  Serious: Yes (Other)
  Sender: FDA-Public Use
  Company Number: TR-BAYER-2019-093920

PATIENT
  Age: 86 Year
  Sex: Male

DRUGS (1)
  1. CIPROFLOXACIN. [Suspect]
     Active Substance: CIPROFLOXACIN
     Indication: SKIN INJURY
     Dosage: 500 MG, BID
     Route: 048

REACTIONS (5)
  - Skin warm [None]
  - Peripheral swelling [None]
  - Erythema [None]
  - Bacteraemia [None]
  - Cellulitis [None]
